FAERS Safety Report 9498770 (Version 2)
Quarter: 2013Q4

REPORT INFORMATION
  Report Type: Report from Study
  Country: US (occurrence: US)
  Receive Date: 20130904
  Receipt Date: 20131204
  Transmission Date: 20140711
  Serious: Yes (Hospitalization)
  Sender: FDA-Public Use
  Company Number: GXBR2013US001625

PATIENT
  Sex: Male
  Weight: 12.25 kg

DRUGS (3)
  1. OMNITROPE [Suspect]
     Indication: HYPOPITUITARISM
     Dosage: 0.9 MG, QD
     Dates: start: 201209
  2. HYDROCORTISONE [Concomitant]
     Dosage: UNK DF, UNK
  3. SYNTHROID [Concomitant]
     Indication: HYPOTHYROIDISM
     Dosage: UNK DF, UNK

REACTIONS (1)
  - Convulsion [Unknown]
